FAERS Safety Report 8890065 (Version 1)
Quarter: 2012Q4

REPORT INFORMATION
  Report Type: 
  Country: CA (occurrence: CA)
  Receive Date: 20121106
  Receipt Date: 20121106
  Transmission Date: 20130627
  Serious: Yes (Other)
  Sender: FDA-Public Use
  Company Number: PHHY2007CA08699

PATIENT

DRUGS (1)
  1. SANDOSTATIN LAR [Suspect]
     Route: 030
     Dates: start: 20061026

REACTIONS (4)
  - Hot flush [Unknown]
  - Injection site induration [Recovered/Resolved]
  - Injection site swelling [Recovered/Resolved]
  - Injection site pain [Recovered/Resolved]
